FAERS Safety Report 17542370 (Version 1)
Quarter: 2020Q1

REPORT INFORMATION
  Report Type: Spontaneous
  Country: CA (occurrence: CA)
  Receive Date: 20200313
  Receipt Date: 20200313
  Transmission Date: 20200409
  Serious: Yes (Other)
  Sender: FDA-Public Use
  Company Number: CA-ROCHE-2518156

PATIENT
  Age: 45 Year
  Sex: Female

DRUGS (6)
  1. SALINEX [SODIUM CHLORIDE] [Concomitant]
     Active Substance: SODIUM CHLORIDE
     Indication: NASAL IRRIGATION
     Route: 045
  2. XOLAIR [Suspect]
     Active Substance: OMALIZUMAB
     Indication: CHRONIC SPONTANEOUS URTICARIA
     Route: 058
     Dates: start: 20191024
  3. XOLAIR [Suspect]
     Active Substance: OMALIZUMAB
     Route: 058
     Dates: start: 20191219
  4. XOLAIR [Suspect]
     Active Substance: OMALIZUMAB
     Route: 058
     Dates: start: 20200124
  5. BENADRYL [Suspect]
     Active Substance: DIPHENHYDRAMINE HYDROCHLORIDE
     Indication: PRODUCT USED FOR UNKNOWN INDICATION
     Route: 065
  6. CHLORPHENIRAMINE [CHLORPHENAMINE] [Concomitant]
     Active Substance: CHLORPHENIRAMINE
     Indication: ANTIALLERGIC THERAPY
     Route: 048
     Dates: start: 2018

REACTIONS (18)
  - Allergy to animal [Unknown]
  - Cough [Unknown]
  - Papule [Not Recovered/Not Resolved]
  - Skin plaque [Not Recovered/Not Resolved]
  - Blood pressure increased [Unknown]
  - Urticaria [Recovered/Resolved]
  - Feeling hot [Unknown]
  - Hypersensitivity [Unknown]
  - Nasopharyngitis [Unknown]
  - Headache [Recovered/Resolved]
  - Acne [Unknown]
  - Scratch [Unknown]
  - Food allergy [Unknown]
  - Erythema [Not Recovered/Not Resolved]
  - Fatigue [Recovered/Resolved]
  - Injection site reaction [Unknown]
  - Therapeutic response decreased [Unknown]
  - Pruritus [Recovered/Resolved]

NARRATIVE: CASE EVENT DATE: 202002
